FAERS Safety Report 18046092 (Version 1)
Quarter: 2020Q3

REPORT INFORMATION
  Report Type: Spontaneous
  Country: GB (occurrence: GB)
  Receive Date: 20200720
  Receipt Date: 20200720
  Transmission Date: 20201103
  Serious: Yes (Other)
  Sender: FDA-Public Use
  Company Number: GB-ASTRAZENECA-2020SE86992

PATIENT
  Age: 16 Month
  Sex: Female

DRUGS (5)
  1. CHOLECALCIFEROL [Concomitant]
     Active Substance: CHOLECALCIFEROL
     Route: 065
  2. ABIDEC [Concomitant]
     Route: 065
  3. OMEPRAZOLE. [Suspect]
     Active Substance: OMEPRAZOLE
     Indication: GASTROOESOPHAGEAL REFLUX DISEASE
     Route: 048
  4. CLOBAZAM. [Concomitant]
     Active Substance: CLOBAZAM
     Route: 065
  5. NEOCATE [Concomitant]
     Active Substance: DIETARY SUPPLEMENT
     Route: 065

REACTIONS (1)
  - Hypophosphataemic osteomalacia [Recovering/Resolving]
